FAERS Safety Report 5270519-2 (Version None)
Quarter: 2007Q1

REPORT INFORMATION
  Report Type: 
  Country: None (occurrence: None)
  Receive Date: 20070315
  Receipt Date: 20070227
  Transmission Date: 20070707
  Serious: Yes (Other)
  Sender: FDA-Public Use
  Company Number: 2007BI001149

PATIENT
  Age: 57 Year
  Sex: Female

DRUGS (1)
  1. NATALIZUMAB [Suspect]
     Indication: MULTIPLE SCLEROSIS
     Dosage: 300 MG; QM; IV
     Route: 042
     Dates: start: 20060907

REACTIONS (5)
  - ASPIRATION [None]
  - DYSPHAGIA [None]
  - DYSPHONIA [None]
  - OESOPHAGEAL DISORDER [None]
  - UPPER RESPIRATORY TRACT INFECTION [None]
